FAERS Safety Report 18246151 (Version 1)
Quarter: 2020Q3

REPORT INFORMATION
  Report Type: Spontaneous
  Country: US (occurrence: US)
  Receive Date: 20200909
  Receipt Date: 20200909
  Transmission Date: 20201103
  Serious: Yes (Other)
  Sender: FDA-Public Use
  Company Number: US-CIPLA LTD.-2020US06252

PATIENT

DRUGS (1)
  1. DICLOFENAC [Suspect]
     Active Substance: DICLOFENAC
     Indication: ARTHRITIS
     Dosage: 4 GRAM, BID (TWO TIMES A DAY)
     Route: 061
     Dates: start: 20200824

REACTIONS (5)
  - Inappropriate schedule of product administration [Unknown]
  - Product substitution issue [Unknown]
  - Headache [Not Recovered/Not Resolved]
  - Product odour abnormal [Unknown]
  - Asthma [Not Recovered/Not Resolved]

NARRATIVE: CASE EVENT DATE: 202008
